FAERS Safety Report 4995064-0 (Version None)
Quarter: 2006Q2

REPORT INFORMATION
  Report Type: 
  Country: None (occurrence: None)
  Receive Date: 20060508
  Receipt Date: 20060410
  Transmission Date: 20061013
  Serious: Yes (Hospitalization)
  Sender: FDA-Public Use
  Company Number: FR-AVENTIS-200611342FR

PATIENT
  Age: 34 Year
  Sex: Male
  Weight: 83 kg

DRUGS (10)
  1. TOPLEXIL ^THERAPLIX^ [Suspect]
     Indication: COUGH
     Route: 048
     Dates: start: 20051110, end: 20051113
  2. KETEK [Suspect]
     Indication: BRONCHITIS ACUTE
     Route: 048
     Dates: start: 20051110, end: 20051113
  3. SOLUPRED [Suspect]
     Indication: COUGH
     Route: 048
     Dates: start: 20051110, end: 20051116
  4. ACETAMINOPHEN [Suspect]
     Indication: DRUG USE FOR UNKNOWN INDICATION
     Route: 048
     Dates: start: 20051110, end: 20051113
  5. CLAMOXYL [Concomitant]
     Indication: BRONCHITIS ACUTE
     Route: 048
     Dates: start: 20051113, end: 20051116
  6. OFLOCET [Concomitant]
     Indication: DRUG USE FOR UNKNOWN INDICATION
     Route: 048
     Dates: start: 20051128, end: 20051206
  7. SMECTA [Concomitant]
     Indication: DRUG USE FOR UNKNOWN INDICATION
     Route: 048
     Dates: start: 20051128
  8. DIFFU K [Concomitant]
     Indication: DRUG USE FOR UNKNOWN INDICATION
     Route: 048
     Dates: start: 20051128
  9. MOPRAL [Concomitant]
     Indication: DRUG USE FOR UNKNOWN INDICATION
     Dates: start: 20051128
  10. FLAGYL [Concomitant]
     Indication: DRUG USE FOR UNKNOWN INDICATION
     Dates: start: 20051128

REACTIONS (12)
  - ABDOMINAL PAIN [None]
  - ABDOMINAL PAIN LOWER [None]
  - ASCITES [None]
  - DIARRHOEA [None]
  - GASTROINTESTINAL DISORDER [None]
  - GENERALISED OEDEMA [None]
  - HEPATITIS CHOLESTATIC [None]
  - HYPERGAMMAGLOBULINAEMIA BENIGN MONOCLONAL [None]
  - INTESTINAL VILLI ATROPHY [None]
  - LYMPHOCYTOSIS [None]
  - OEDEMA PERIPHERAL [None]
  - PLEURAL EFFUSION [None]
